FAERS Safety Report 4472037-8 (Version None)
Quarter: 2004Q3

REPORT INFORMATION
  Report Type: 
  Country: None (occurrence: None)
  Receive Date: 20040909
  Receipt Date: 20040604
  Transmission Date: 20050211
  Serious: Yes (Hospitalization, Other)
  Sender: FDA-Public Use
  Company Number: F03200400059

PATIENT
  Age: 65 Year
  Sex: Male

DRUGS (11)
  1. OXALIPLATIN  SOLUTION- [Suspect]
     Indication: COLORECTAL CANCER METASTATIC
     Dosage: 153 MG INTRAVENOUS NOS
     Route: 042
  2. PTK787/ZK 222584 VS. PLACEBO [Suspect]
     Indication: COLORECTAL CANCER METASTATIC
     Dosage: ORAL
     Route: 048
     Dates: start: 20031208, end: 20040327
  3. FLUOROURACIL [Suspect]
     Indication: COLORECTAL CANCER METASTATIC
     Dosage: INTRAVENOUS NOS
     Route: 042
     Dates: start: 20031208
  4. FLUOROURACIL [Suspect]
     Indication: COLORECTAL CANCER METASTATIC
     Dosage: INTRAVENOUS NOS
     Route: 042
     Dates: start: 20031208
  5. LEUCOVORIN [Concomitant]
  6. METFORMIN HCL [Concomitant]
  7. ROSGLITAZONE MALEATE [Concomitant]
  8. TAMSULOSIN HYDROCHLORIDE [Concomitant]
  9. TOLTERODINE TARTRATE [Concomitant]
  10. LANSOPRAZOLE [Concomitant]
  11. WARFARIN SODIUM [Concomitant]

REACTIONS (1)
  - FEBRILE NEUTROPENIA [None]
